FAERS Safety Report 20506402 (Version 1)
Quarter: 2022Q1

REPORT INFORMATION
  Report Type: Spontaneous
  Country: CA (occurrence: CA)
  Receive Date: 20220223
  Receipt Date: 20220223
  Transmission Date: 20220423
  Serious: Yes (Other)
  Sender: FDA-Public Use
  Company Number: CA-GLAXOSMITHKLINE-CA2022AMR030341

PATIENT
  Sex: Female

DRUGS (1)
  1. SOTROVIMAB [Suspect]
     Active Substance: SOTROVIMAB
     Indication: Coronavirus infection
     Dosage: UNK
     Route: 042
     Dates: start: 20220118

REACTIONS (15)
  - Sepsis [Unknown]
  - Feeling abnormal [Unknown]
  - Sinus disorder [Not Recovered/Not Resolved]
  - Pain [Recovering/Resolving]
  - Paranasal sinus discomfort [Unknown]
  - Head discomfort [Unknown]
  - Ear discomfort [Unknown]
  - Tinnitus [Unknown]
  - Abdominal discomfort [Not Recovered/Not Resolved]
  - Fatigue [Not Recovered/Not Resolved]
  - Dehydration [Unknown]
  - Sinonasal obstruction [Unknown]
  - Condition aggravated [Unknown]
  - Emotional disorder [Unknown]
  - Discomfort [Recovering/Resolving]

NARRATIVE: CASE EVENT DATE: 20220101
